FAERS Safety Report 20667633 (Version 3)
Quarter: 2022Q2

REPORT INFORMATION
  Report Type: Spontaneous
  Country: CA (occurrence: CA)
  Receive Date: 20220404
  Receipt Date: 20220420
  Transmission Date: 20220721
  Serious: Yes (Death, Life-Threatening, Hospitalization, Other)
  Sender: FDA-Public Use
  Company Number: CA-TEVA-2022-CA-2022494

PATIENT
  Age: 22 Year
  Sex: Female

DRUGS (53)
  1. HALOPERIDOL [Suspect]
     Active Substance: HALOPERIDOL
     Indication: Cyclic vomiting syndrome
     Route: 065
  2. HALOPERIDOL [Suspect]
     Active Substance: HALOPERIDOL
     Indication: Cannabinoid hyperemesis syndrome
     Route: 065
  3. HALOPERIDOL [Suspect]
     Active Substance: HALOPERIDOL
     Indication: Anxiety
     Route: 048
  4. HALOPERIDOL [Suspect]
     Active Substance: HALOPERIDOL
     Indication: Vomiting
  5. HALOPERIDOL [Suspect]
     Active Substance: HALOPERIDOL
     Indication: Nausea
  6. OLANZAPINE [Suspect]
     Active Substance: OLANZAPINE
     Indication: Cyclic vomiting syndrome
     Route: 065
  7. OLANZAPINE [Suspect]
     Active Substance: OLANZAPINE
     Indication: Vomiting
     Dosage: 5 MILLIGRAM DAILY;
     Route: 065
  8. OLANZAPINE [Suspect]
     Active Substance: OLANZAPINE
     Indication: Nausea
     Route: 048
  9. OLANZAPINE [Suspect]
     Active Substance: OLANZAPINE
     Indication: Cannabinoid hyperemesis syndrome
  10. OLANZAPINE [Suspect]
     Active Substance: OLANZAPINE
     Indication: Anxiety
  11. ONDANSETRON HYDROCHLORIDE [Suspect]
     Active Substance: ONDANSETRON HYDROCHLORIDE
     Indication: Cyclic vomiting syndrome
     Dosage: 8 MILLIGRAM DAILY;
     Route: 065
  12. ONDANSETRON HYDROCHLORIDE [Suspect]
     Active Substance: ONDANSETRON HYDROCHLORIDE
     Indication: Vomiting
     Route: 065
  13. ONDANSETRON HYDROCHLORIDE [Suspect]
     Active Substance: ONDANSETRON HYDROCHLORIDE
     Indication: Nausea
     Route: 065
  14. ONDANSETRON HYDROCHLORIDE [Suspect]
     Active Substance: ONDANSETRON HYDROCHLORIDE
     Indication: Cannabinoid hyperemesis syndrome
     Route: 065
  15. ONDANSETRON HYDROCHLORIDE [Suspect]
     Active Substance: ONDANSETRON HYDROCHLORIDE
     Route: 048
  16. HALOPERIDOL DECANOATE [Suspect]
     Active Substance: HALOPERIDOL DECANOATE
     Indication: Cannabinoid hyperemesis syndrome
     Route: 065
  17. HALOPERIDOL DECANOATE [Suspect]
     Active Substance: HALOPERIDOL DECANOATE
     Indication: Cyclic vomiting syndrome
     Route: 065
  18. HALOPERIDOL DECANOATE [Suspect]
     Active Substance: HALOPERIDOL DECANOATE
     Indication: Anxiety
     Route: 042
  19. KETOROLAC [Suspect]
     Active Substance: KETOROLAC TROMETHAMINE
     Indication: Product used for unknown indication
     Route: 042
  20. KETOROLAC [Suspect]
     Active Substance: KETOROLAC TROMETHAMINE
     Route: 048
  21. OLANZAPINE [Suspect]
     Active Substance: OLANZAPINE
     Indication: Cyclic vomiting syndrome
     Route: 042
  22. OLANZAPINE [Suspect]
     Active Substance: OLANZAPINE
     Indication: Anxiety
  23. ONDANSETRON HYDROCHLORIDE [Suspect]
     Active Substance: ONDANSETRON HYDROCHLORIDE
     Indication: Nausea
     Route: 042
  24. ONDANSETRON HYDROCHLORIDE [Suspect]
     Active Substance: ONDANSETRON HYDROCHLORIDE
     Indication: Cyclic vomiting syndrome
     Route: 048
  25. DIMENHYDRINATE [Concomitant]
     Active Substance: DIMENHYDRINATE
     Indication: Product used for unknown indication
     Route: 065
  26. DIMENHYDRINATE [Concomitant]
     Active Substance: DIMENHYDRINATE
     Indication: Vomiting
  27. DIMENHYDRINATE [Concomitant]
     Active Substance: DIMENHYDRINATE
     Indication: Nausea
  28. GRAVOL [Concomitant]
     Active Substance: DIMENHYDRINATE
     Indication: Nausea
     Route: 065
  29. GRAVOL [Concomitant]
     Active Substance: DIMENHYDRINATE
     Indication: Cyclic vomiting syndrome
     Dosage: 50 MILLIGRAM DAILY;
     Route: 065
  30. GRAVOL [Concomitant]
     Active Substance: DIMENHYDRINATE
     Indication: Anxiety
     Route: 048
  31. GRAVOL [Concomitant]
     Active Substance: DIMENHYDRINATE
     Indication: Vomiting
     Route: 042
  32. GRAVOL [Concomitant]
     Active Substance: DIMENHYDRINATE
     Indication: Cannabinoid hyperemesis syndrome
  33. HALOPERIDOL [Concomitant]
     Active Substance: HALOPERIDOL
  34. LORAZEPAM [Concomitant]
     Active Substance: LORAZEPAM
     Indication: Nausea
     Route: 065
  35. LORAZEPAM [Concomitant]
     Active Substance: LORAZEPAM
     Indication: Cyclic vomiting syndrome
     Route: 065
  36. LORAZEPAM [Concomitant]
     Active Substance: LORAZEPAM
     Indication: Anxiety
     Route: 042
  37. LORAZEPAM [Concomitant]
     Active Substance: LORAZEPAM
     Indication: Vomiting
     Route: 048
  38. LORAZEPAM [Concomitant]
     Active Substance: LORAZEPAM
     Indication: Anxiolytic therapy
  39. LORAZEPAM [Concomitant]
     Active Substance: LORAZEPAM
     Indication: Cannabinoid hyperemesis syndrome
  40. CANNABIS SATIVA FLOWERING TOP [Concomitant]
     Active Substance: CANNABIS SATIVA FLOWERING TOP
     Indication: Product used for unknown indication
  41. OLANZAPINE [Concomitant]
     Active Substance: OLANZAPINE
  42. BORIC ACID [Concomitant]
     Active Substance: BORIC ACID
  43. KETOROLAC [Concomitant]
     Active Substance: KETOROLAC TROMETHAMINE
     Indication: Vomiting
     Route: 065
  44. POTASSIUM PHOSPHATE, DIBASIC\POTASSIUM PHOSPHATE, MONOBASIC [Concomitant]
     Active Substance: POTASSIUM PHOSPHATE, DIBASIC\POTASSIUM PHOSPHATE, MONOBASIC
     Indication: Product used for unknown indication
  45. POTASSIUM PHOSPHATE, DIBASIC\POTASSIUM PHOSPHATE, MONOBASIC [Concomitant]
     Active Substance: POTASSIUM PHOSPHATE, DIBASIC\POTASSIUM PHOSPHATE, MONOBASIC
     Indication: Vomiting
     Route: 042
  46. POTASSIUM PHOSPHATE, DIBASIC\POTASSIUM PHOSPHATE, MONOBASIC [Concomitant]
     Active Substance: POTASSIUM PHOSPHATE, DIBASIC\POTASSIUM PHOSPHATE, MONOBASIC
     Indication: Drug therapy
  47. SODIUM CHLORIDE [Concomitant]
     Active Substance: SODIUM CHLORIDE
     Indication: Product used for unknown indication
     Route: 065
  48. SODIUM CHLORIDE [Concomitant]
     Active Substance: SODIUM CHLORIDE
     Indication: Drug therapy
  49. SALINE [Concomitant]
     Active Substance: SODIUM CHLORIDE
     Indication: Fluid replacement
     Route: 065
  50. SODIUM CHLORIDE [Concomitant]
     Active Substance: SODIUM CHLORIDE
  51. METOCLOPRAMIDE [Concomitant]
     Active Substance: METOCLOPRAMIDE
     Indication: Product used for unknown indication
     Route: 042
  52. METOCLOPRAMIDE [Concomitant]
     Active Substance: METOCLOPRAMIDE
     Indication: Vomiting
     Route: 065
  53. METOCLOPRAMIDE [Concomitant]
     Active Substance: METOCLOPRAMIDE
     Route: 048

REACTIONS (26)
  - Apallic syndrome [Fatal]
  - Bradycardia [Fatal]
  - Brain death [Fatal]
  - Brain injury [Fatal]
  - Cardiac arrest [Fatal]
  - Hypertension [Fatal]
  - Hypokalaemia [Fatal]
  - Hypoxic-ischaemic encephalopathy [Fatal]
  - Mucosal dryness [Fatal]
  - Myocardial reperfusion injury [Fatal]
  - Pneumonia [Fatal]
  - Pulmonary embolism [Fatal]
  - Pulmonary oedema [Fatal]
  - Torsade de pointes [Fatal]
  - Ventricular fibrillation [Fatal]
  - Electrocardiogram QT prolonged [Fatal]
  - Blood creatinine increased [Fatal]
  - Blood phosphorus decreased [Fatal]
  - Blood sodium decreased [Fatal]
  - Anxiety [Fatal]
  - Torsade de pointes [Fatal]
  - Vomiting [Fatal]
  - Off label use [Fatal]
  - Arrhythmia [Fatal]
  - Cardio-respiratory arrest [Fatal]
  - Contraindicated product administered [Fatal]
